FAERS Safety Report 11589086 (Version 1)
Quarter: 2015Q4

REPORT INFORMATION
  Report Type: Report from Study
  Country: US (occurrence: US)
  Receive Date: 20151002
  Receipt Date: 20151002
  Transmission Date: 20160304
  Serious: Yes (Death, Hospitalization, Disabling, Other)
  Sender: FDA-Public Use
  Company Number: US-ABBVIE-15K-163-1471758-00

PATIENT
  Age: 51 Year
  Sex: Male
  Weight: 88.53 kg

DRUGS (2)
  1. HUMIRA [Suspect]
     Active Substance: ADALIMUMAB
     Route: 058
     Dates: start: 20150310, end: 20150818
  2. HUMIRA [Suspect]
     Active Substance: ADALIMUMAB
     Indication: PSORIASIS
     Route: 058
     Dates: start: 2012, end: 20150310

REACTIONS (5)
  - Malaise [Fatal]
  - Mobility decreased [Fatal]
  - Pulmonary embolism [Fatal]
  - Interstitial lung disease [Not Recovered/Not Resolved]
  - Pallor [Fatal]

NARRATIVE: CASE EVENT DATE: 201412
